FAERS Safety Report 13900758 (Version 1)
Quarter: 2017Q3

REPORT INFORMATION
  Report Type: Spontaneous
  Country: US (occurrence: US)
  Receive Date: 20170824
  Receipt Date: 20170824
  Transmission Date: 20171127
  Serious: Yes (Hospitalization)
  Sender: FDA-Public Use
  Company Number: US-LPDUSPRD-20171157

PATIENT
  Age: 84 Year
  Sex: Male
  Weight: 70.3 kg

DRUGS (14)
  1. ARICEPT [Concomitant]
     Active Substance: DONEPEZIL HYDROCHLORIDE
     Dosage: UNKNOWN
     Route: 065
     Dates: start: 20160707
  2. NAMENDA [Concomitant]
     Active Substance: MEMANTINE HYDROCHLORIDE
     Dosage: UNKNOWN
     Route: 065
     Dates: start: 20161222
  3. AMLODIPINE [Concomitant]
     Active Substance: AMLODIPINE BESYLATE
     Dosage: UNKNOWN
     Route: 065
     Dates: end: 201607
  4. LABETALOL [Concomitant]
     Active Substance: LABETALOL\LABETALOL HYDROCHLORIDE
     Dosage: UNKNOWN
     Route: 065
  5. FINASTERIDE. [Concomitant]
     Active Substance: FINASTERIDE
     Dosage: UNKNOWN
     Route: 065
  6. SINEMET [Concomitant]
     Active Substance: CARBIDOPA\LEVODOPA
     Dosage: UNKNOWN
     Route: 065
     Dates: start: 20160707
  7. PRAVACHOL [Concomitant]
     Active Substance: PRAVASTATIN SODIUM
     Dosage: UNKNOWN
     Route: 065
     Dates: start: 20160707
  8. CALCITROL [Concomitant]
     Active Substance: CALCITRIOL
     Dosage: UNKNOWN
     Route: 065
  9. NUPLAZID [Suspect]
     Active Substance: PIMAVANSERIN TARTRATE
     Dosage: 34 MG QD
     Route: 048
     Dates: start: 20170608, end: 20170723
  10. LISINOPRIL. [Concomitant]
     Active Substance: LISINOPRIL
     Dosage: UNKNOWN
     Route: 065
     Dates: start: 20161222
  11. HYDRALAZINE HCL INJECTION, USP (0901-25) [Suspect]
     Active Substance: HYDRALAZINE HYDROCHLORIDE
     Dosage: UNKNOWN
     Dates: start: 201707
  12. MEMANTINE HCL [Concomitant]
     Active Substance: MEMANTINE
     Dosage: UNKNOWN
     Route: 065
  13. ASPIRIN. [Concomitant]
     Active Substance: ASPIRIN
     Dosage: UNKNOWN
     Route: 065
  14. PROSCAR [Concomitant]
     Active Substance: FINASTERIDE
     Dosage: UNKNOWN
     Route: 065
     Dates: start: 20161222

REACTIONS (3)
  - Bradycardia [Unknown]
  - Pain in extremity [Unknown]
  - Dizziness [Unknown]
